FAERS Safety Report 20860750 (Version 1)
Quarter: 2022Q2

REPORT INFORMATION
  Report Type: Spontaneous
  Country: FR (occurrence: FR)
  Receive Date: 20220523
  Receipt Date: 20220523
  Transmission Date: 20220721
  Serious: Yes (Hospitalization)
  Sender: FDA-Public Use
  Company Number: None

PATIENT
  Age: 63 Year
  Sex: Male
  Weight: 93 kg

DRUGS (10)
  1. ZELBORAF [Suspect]
     Active Substance: VEMURAFENIB
     Indication: Metastatic malignant melanoma
     Dosage: 960MG/J
     Route: 048
     Dates: start: 20220126, end: 20220212
  2. COTELLIC [Suspect]
     Active Substance: COBIMETINIB
     Indication: Metastatic malignant melanoma
     Dosage: 60 MG/J
     Route: 048
     Dates: start: 20220126, end: 20220212
  3. LYRICA [Concomitant]
     Active Substance: PREGABALIN
  4. PANTOPRAZOLE [Concomitant]
     Active Substance: PANTOPRAZOLE
  5. METFORMIN PAMOATE [Concomitant]
     Active Substance: METFORMIN PAMOATE
  6. INSULIN NOS [Concomitant]
     Active Substance: INSULIN NOS
  7. KEPPRA [Concomitant]
     Active Substance: LEVETIRACETAM
  8. PREDNISONE [Concomitant]
     Active Substance: PREDNISONE
  9. OPDIVO [Concomitant]
     Active Substance: NIVOLUMAB
     Route: 042
     Dates: start: 20211130
  10. AMLODIPINE [Concomitant]
     Active Substance: AMLODIPINE BESYLATE

REACTIONS (1)
  - Drug reaction with eosinophilia and systemic symptoms [Recovered/Resolved]

NARRATIVE: CASE EVENT DATE: 20220210
